FAERS Safety Report 17307406 (Version 4)
Quarter: 2020Q3

REPORT INFORMATION
  Report Type: Report from Study
  Country: ES (occurrence: ES)
  Receive Date: 20200123
  Receipt Date: 20200708
  Transmission Date: 20201102
  Serious: Yes (Hospitalization)
  Sender: FDA-Public Use
  Company Number: ES-ROCHE-2526211

PATIENT
  Age: 76 Year
  Sex: Female
  Weight: 76 kg

DRUGS (19)
  1. OMEPRAZOLE. [Concomitant]
     Active Substance: OMEPRAZOLE
     Route: 048
     Dates: start: 20191223
  2. DOXYCYCLINE. [Concomitant]
     Active Substance: DOXYCYCLINE
     Indication: DERMATITIS ACNEIFORM
     Route: 048
     Dates: start: 20191213, end: 20191223
  3. HALOPERIDOL. [Concomitant]
     Active Substance: HALOPERIDOL
     Route: 048
     Dates: start: 20200111
  4. ATOLME PLUS [Concomitant]
     Indication: HYPERTENSION
     Route: 048
     Dates: start: 201908, end: 20200204
  5. EUTIROX [Concomitant]
     Active Substance: LEVOTHYROXINE SODIUM
     Indication: HYPOTHYROIDISM
     Route: 048
     Dates: start: 2009
  6. NOLOTIL [METAMIZOLE MAGNESIUM] [Concomitant]
     Active Substance: METAMIZOLE MAGNESIUM
     Indication: GASTROINTESTINAL TOXICITY
     Route: 042
     Dates: start: 20191209
  7. FLUTICREM [Concomitant]
     Indication: DERMATITIS ACNEIFORM
     Route: 061
     Dates: start: 20191223
  8. OMEPRAZOLE. [Concomitant]
     Active Substance: OMEPRAZOLE
     Indication: PROPHYLAXIS
     Route: 042
     Dates: start: 20191213
  9. ATEZOLIZUMAB. [Suspect]
     Active Substance: ATEZOLIZUMAB
     Indication: OVARIAN CANCER
     Dosage: DATE OF MOST RECENT DOSE (840 MG) OF ATEZOLIZUMAB PRIOR TO AE AND SAE ONSET: 30/DEC/2019
     Route: 041
     Dates: start: 20191202
  10. DEXAMETHASONE. [Concomitant]
     Active Substance: DEXAMETHASONE
     Route: 048
     Dates: start: 20200111
  11. NIRAPARIB [Suspect]
     Active Substance: NIRAPARIB
     Indication: OVARIAN CANCER
     Dosage: DATE OF MOST RECENT DOSE (100 MG) OF NIRAPARIB PRIOR TO AE AND SAE ONSET: 30/DEC/2019
     Route: 048
     Dates: start: 20191202
  12. DIPRODERM [BETAMETHASONE DIPROPIONATE] [Concomitant]
     Indication: DERMATITIS ACNEIFORM
     Route: 061
     Dates: start: 20191213, end: 20191219
  13. ZYLORIC [Concomitant]
     Active Substance: ALLOPURINOL
     Indication: HYPERURICAEMIA
     Route: 048
     Dates: start: 201909
  14. ONDANSETRON [Concomitant]
     Active Substance: ONDANSETRON
     Route: 048
     Dates: start: 20191230, end: 20200107
  15. LOPERAMIDE [Concomitant]
     Active Substance: LOPERAMIDE
     Route: 048
     Dates: start: 20191230, end: 20200103
  16. COBIMETINIB. [Suspect]
     Active Substance: COBIMETINIB
     Indication: OVARIAN CANCER
     Dosage: DATE OF MOST RECENT DOSE (40 MG) OF COBIMETINIB PRIOR TO AE AND SAE ONSET: 30/DEC/2019
     Route: 048
     Dates: start: 20191202
  17. BENEXOL [PYRIDOXINE HYDROCHLORIDE;THIAMINE HYDROCHLORIDE] [Concomitant]
     Route: 048
     Dates: start: 201901
  18. MAGNESIUM [Concomitant]
     Active Substance: MAGNESIUM
     Route: 048
     Dates: start: 201904
  19. PRIMPERAN [Concomitant]
     Active Substance: METOCLOPRAMIDE HYDROCHLORIDE
     Indication: VOMITING
     Route: 042
     Dates: start: 20191212

REACTIONS (1)
  - Renal failure [Recovered/Resolved]

NARRATIVE: CASE EVENT DATE: 20200114
